FAERS Safety Report 18760988 (Version 1)
Quarter: 2021Q1

REPORT INFORMATION
  Report Type: Spontaneous
  Country: US (occurrence: US)
  Receive Date: 20210120
  Receipt Date: 20210120
  Transmission Date: 20210419
  Serious: No
  Sender: FDA-Public Use
  Company Number: US-HIKMA PHARMACEUTICALS USA INC.-US-H14001-20-04540

PATIENT
  Age: 70 Year
  Sex: Male

DRUGS (4)
  1. MELOXICAM. [Concomitant]
     Active Substance: MELOXICAM
     Indication: PRODUCT USED FOR UNKNOWN INDICATION
     Route: 065
  2. BALSALAZIDE [Suspect]
     Active Substance: BALSALAZIDE
     Indication: COLITIS ULCERATIVE
     Route: 065
  3. BALSALAZIDE [Suspect]
     Active Substance: BALSALAZIDE
     Route: 065
  4. DOXASOLZEM [Concomitant]
     Indication: BLOOD PRESSURE INCREASED
     Route: 065

REACTIONS (1)
  - Incorrect product administration duration [Unknown]
